FAERS Safety Report 24160066 (Version 1)
Quarter: 2024Q3

REPORT INFORMATION
  Report Type: Spontaneous
  Country: GB (occurrence: GB)
  Receive Date: 20240801
  Receipt Date: 20240801
  Transmission Date: 20241016
  Serious: Yes (Other)
  Sender: DEXCEL
  Company Number: None

PATIENT
  Age: 56 Year

DRUGS (8)
  1. ParacetamolPARACETAMOL (Specific Substance SUB155) [Concomitant]
  2. ApixabanAPIXABAN (Specific Substance SUB10017) [Concomitant]
  3. DocusateDOCUSATE (Specific Substance SUB5064) [Concomitant]
  4. LactuloseLACTULOSE (Specific Substance SUB7431) [Concomitant]
     Dosage: 3.1-3.7 G / 5 ML
  5. Macrogol compoundMACROGOL COMPOUND (Specific Substance SUB2892) [Concomitant]
     Dosage: SACHETS NPF SUGAR FREE TAKE THE CONTENTS OF 4 SACHETS DISSOLVED IN WATER ON FIRST DAY, INCREASE I...
  6. OMEPRAZOLE [Suspect]
     Active Substance: OMEPRAZOLE
  7. DenosumabDENOSUMAB (Specific Substance SUB9921) [Concomitant]
  8. OsimertinibOSIMERTINIB (Specific Substance SUB12330) [Concomitant]
     Dosage: TOLD TO STOP TAKING DUE TO BEING UNWELL

REACTIONS (2)
  - Abdominal pain upper [Unknown]
  - Muscle spasms [Unknown]
